FAERS Safety Report 6519338-7 (Version None)
Quarter: 2009Q4

REPORT INFORMATION
  Report Type: 
  Country: None (occurrence: None)
  Receive Date: 20091228
  Receipt Date: 20091214
  Transmission Date: 20100525
  Serious: Yes (Hospitalization, Other)
  Sender: FDA-Public Use
  Company Number: JP-PFIZER INC-2009285577

PATIENT
  Age: 72 Year
  Sex: Female
  Weight: 35 kg

DRUGS (13)
  1. CARDENALIN [Suspect]
     Indication: HYPERTENSION
     Dosage: 2 MG, 1X/DAY
     Route: 048
     Dates: start: 20090130
  2. CARDENALIN [Suspect]
     Dosage: 4 MG, 1X/DAY
     Dates: end: 20091028
  3. ONON [Suspect]
     Indication: RHINITIS ALLERGIC
     Dosage: FREQUENCY: 2X/DAY,
     Route: 048
     Dates: start: 20080825, end: 20091009
  4. JUVELA NICOTINATE [Concomitant]
     Dosage: UNK
     Route: 048
     Dates: start: 20070511
  5. YODEL [Concomitant]
  6. LASIX [Concomitant]
     Dosage: UNK
     Route: 048
  7. THYRADIN S [Concomitant]
  8. ADALAT [Concomitant]
     Indication: HYPERTENSION
     Dosage: UNK
     Route: 048
     Dates: start: 20081017
  9. ARTIST [Concomitant]
     Indication: HYPERTENSION
     Route: 048
     Dates: start: 20081031, end: 20091016
  10. BENZALIN [Concomitant]
     Dosage: UNK
     Route: 048
     Dates: start: 20081121
  11. POSTERISAN FORTE [Concomitant]
     Dates: end: 20090827
  12. CALCIUM POLYSTYRENE SULFONATE [Concomitant]
     Dosage: UNK
     Route: 048
  13. BLOPRESS [Concomitant]
     Dates: end: 20091204

REACTIONS (3)
  - ALOPECIA [None]
  - BLOOD PRESSURE DECREASED [None]
  - SHUNT MALFUNCTION [None]
